FAERS Safety Report 13857205 (Version 1)
Quarter: 2017Q3

REPORT INFORMATION
  Report Type: Spontaneous
  Country: US (occurrence: US)
  Receive Date: 20170810
  Receipt Date: 20170810
  Transmission Date: 20171127
  Serious: No
  Sender: FDA-Public Use
  Company Number: US-ROCHE-1195180

PATIENT
  Sex: Male

DRUGS (1)
  1. TAMIFLU [Suspect]
     Active Substance: OSELTAMIVIR PHOSPHATE
     Indication: INFLUENZA
     Route: 065
     Dates: start: 20130220

REACTIONS (5)
  - Mouth ulceration [Unknown]
  - Malaise [Unknown]
  - Blister [Unknown]
  - Aphthous ulcer [Recovering/Resolving]
  - Oral herpes [Unknown]
